FAERS Safety Report 25920382 (Version 1)
Quarter: 2025Q4

REPORT INFORMATION
  Report Type: Spontaneous
  Country: US (occurrence: US)
  Receive Date: 20251014
  Receipt Date: 20251014
  Transmission Date: 20260118
  Serious: No
  Sender: TEVA
  Company Number: US-TEVA-VS-3379249

PATIENT
  Age: 63 Year
  Sex: Female
  Weight: 63.049 kg

DRUGS (2)
  1. AJOVY [Suspect]
     Active Substance: FREMANEZUMAB-VFRM
     Indication: Migraine
     Dosage: FORM STRENGTH: 225/1.5MG/ML
     Route: 065
     Dates: start: 20250930
  2. RIZATRIPTAN [Concomitant]
     Active Substance: RIZATRIPTAN
     Indication: Product used for unknown indication
     Dosage: DISSOLVABLE TABLETS

REACTIONS (8)
  - Cough [Unknown]
  - Productive cough [Unknown]
  - Chills [Unknown]
  - Injection site pruritus [Unknown]
  - Influenza [Unknown]
  - Pain [Unknown]
  - Pyrexia [Unknown]
  - Oropharyngeal pain [Unknown]

NARRATIVE: CASE EVENT DATE: 20250101
